FAERS Safety Report 4885371-4 (Version None)
Quarter: 2005Q4

REPORT INFORMATION
  Report Type: 
  Country: None (occurrence: None)
  Receive Date: 20051222
  Receipt Date: 20050304
  Transmission Date: 20060501
  Serious: No
  Sender: FDA-Public Use
  Company Number: 05H-163-0293581-00

PATIENT
  Sex: Female

DRUGS (1)
  1. MORPHINE SULFATE INJ [Suspect]
     Indication: POSTOPERATIVE ANALGESIA
     Dosage: 1 MG/HR  CONT. RATE 30 MG 4 HR
     Dates: start: 20050304, end: 20050304

REACTIONS (2)
  - OVERDOSE [None]
  - RESPIRATORY RATE DECREASED [None]
